FAERS Safety Report 18458531 (Version 1)
Quarter: 2020Q4

REPORT INFORMATION
  Report Type: Report from Study
  Country: US (occurrence: US)
  Receive Date: 20201103
  Receipt Date: 20201103
  Transmission Date: 20210114
  Serious: Yes (Hospitalization)
  Sender: FDA-Public Use
  Company Number: US-TAKEDA-US201845012

PATIENT

DRUGS (12)
  1. MULTIVITAMIN [Concomitant]
     Active Substance: VITAMINS
     Indication: SHORT-BOWEL SYNDROME
     Dosage: 2 DOSAGE FORM, QD
     Route: 048
  2. TEDUGLUTIDE [Suspect]
     Active Substance: TEDUGLUTIDE
     Indication: SHORT-BOWEL SYNDROME
     Dosage: 2.4 MG (DAILY DOSE OF 0.05 MG KG AND 7 DOSES PER WEEK), UNK
     Route: 065
     Dates: start: 20140626, end: 20140901
  3. DAPTOMYCIN. [Concomitant]
     Active Substance: DAPTOMYCIN
     Indication: ARTHRITIS
  4. ERAXIS [Concomitant]
     Active Substance: ANIDULAFUNGIN
     Indication: BACTERAEMIA
  5. ACETAMINOPHEN. [Concomitant]
     Active Substance: ACETAMINOPHEN
     Indication: ARTHRITIS BACTERIAL
     Dosage: 325 MILLIGRAM, PRN
     Route: 048
     Dates: start: 20180305, end: 20190220
  6. TEDUGLUTIDE [Suspect]
     Active Substance: TEDUGLUTIDE
     Indication: SHORT-BOWEL SYNDROME
     Dosage: 2.4 MG (DAILY DOSE OF 0.05 MG KG AND 7 DOSES PER WEEK), UNK
     Route: 065
     Dates: start: 20140626, end: 20140901
  7. DAPTOMYCIN. [Concomitant]
     Active Substance: DAPTOMYCIN
     Indication: BACTERAEMIA
  8. TEDUGLUTIDE [Suspect]
     Active Substance: TEDUGLUTIDE
     Indication: SHORT-BOWEL SYNDROME
     Dosage: 2.4 MG (DAILY DOSE OF 0.05 MG KG AND 7 DOSES PER WEEK), UNK
     Route: 065
     Dates: start: 20140626, end: 20140901
  9. TEDUGLUTIDE [Suspect]
     Active Substance: TEDUGLUTIDE
     Indication: SHORT-BOWEL SYNDROME
     Dosage: 2.4 MG (DAILY DOSE OF 0.05 MG KG AND 7 DOSES PER WEEK), UNK
     Route: 065
     Dates: start: 20140626, end: 20140901
  10. NAFCILLIN [Concomitant]
     Active Substance: NAFCILLIN SODIUM
     Indication: SEPSIS
  11. PREDNISOLONE ACETATE. [Concomitant]
     Active Substance: PREDNISOLONE ACETATE
     Indication: CANDIDA ENDOPHTHALMITIS
     Dosage: 1 MILLILITER, QD
     Route: 047
  12. SANDOSTATIN LAR DEPOT [Concomitant]
     Active Substance: OCTREOTIDE ACETATE
     Indication: DIARRHOEA
     Dosage: 20 MILLIGRAM, EVERY 28 DAYS
     Route: 030
     Dates: start: 20180124

REACTIONS (4)
  - Macular degeneration [Not Recovered/Not Resolved]
  - Diarrhoea [Not Recovered/Not Resolved]
  - Arthritis bacterial [Not Recovered/Not Resolved]
  - Candida endophthalmitis [Not Recovered/Not Resolved]

NARRATIVE: CASE EVENT DATE: 20180101
